FAERS Safety Report 21021626 (Version 1)
Quarter: 2022Q2

REPORT INFORMATION
  Report Type: Spontaneous
  Country: US (occurrence: None)
  Receive Date: 20220628
  Receipt Date: 20220628
  Transmission Date: 20220720
  Serious: Yes (Hospitalization)
  Sender: FDA-Public Use
  Company Number: None

PATIENT
  Age: 73 Year
  Sex: Male

DRUGS (1)
  1. ORENCIA [Suspect]
     Active Substance: ABATACEPT
     Dosage: OTHER FREQUENCY : UNKNOWN;?
     Route: 058
     Dates: start: 202202

REACTIONS (2)
  - Chest pain [None]
  - Hypertension [None]

NARRATIVE: CASE EVENT DATE: 20220619
